FAERS Safety Report 9257957 (Version 1)
Quarter: 2013Q2

REPORT INFORMATION
  Report Type: Spontaneous
  Country: US (occurrence: US)
  Receive Date: 20130426
  Receipt Date: 20130426
  Transmission Date: 20140414
  Serious: No
  Sender: FDA-Public Use
  Company Number: US-B.I. PHARMACEUTICALS,INC./RIDGEFIELD-2013-BI-09730BP

PATIENT
  Sex: Male

DRUGS (2)
  1. ATROVENT [Suspect]
     Route: 055
     Dates: start: 201301
  2. SPIRIVA [Suspect]
     Route: 055

REACTIONS (6)
  - Rash [Recovered/Resolved]
  - Erythema [Recovered/Resolved]
  - Rhinorrhoea [Recovered/Resolved]
  - Nervousness [Recovered/Resolved]
  - Pleuritic pain [Recovered/Resolved]
  - Malaise [Recovered/Resolved]
